FAERS Safety Report 8017841 (Version 3)
Quarter: 2016Q1

REPORT INFORMATION
  Report Type: Spontaneous
  Country: BR (occurrence: BR)
  Receive Date: 20110630
  Receipt Date: 20160203
  Transmission Date: 20160526
  Serious: Yes (Hospitalization)
  Sender: FDA-Public Use
  Company Number: BR-ASTRAZENECA-2011SE37647

PATIENT
  Age: 71 Year
  Sex: Female
  Weight: 64 kg

DRUGS (11)
  1. CRESTOR [Suspect]
     Active Substance: ROSUVASTATIN CALCIUM
     Indication: HYPERCHOLESTEROLAEMIA
     Route: 048
     Dates: start: 201105
  2. FORXIGA [Suspect]
     Active Substance: DAPAGLIFLOZIN
     Indication: DIABETES MELLITUS
     Route: 048
     Dates: start: 2015, end: 2015
  3. ATENOL [Suspect]
     Active Substance: ATENOLOL
     Indication: HYPERTENSION
     Route: 048
     Dates: start: 2005, end: 201104
  4. CRESTOR [Suspect]
     Active Substance: ROSUVASTATIN CALCIUM
     Indication: HYPERCHOLESTEROLAEMIA
     Route: 048
     Dates: start: 2005, end: 201105
  5. RAMIPRIL. [Concomitant]
     Active Substance: RAMIPRIL
     Indication: HYPERTENSION
     Route: 048
     Dates: start: 2004
  6. CIPROFIBRATE [Concomitant]
     Active Substance: CIPROFIBRATE
     Dosage: EVERY OTHER DAY
     Dates: start: 201105
  7. FORXIGA [Suspect]
     Active Substance: DAPAGLIFLOZIN
     Indication: DIABETES MELLITUS
     Route: 048
     Dates: start: 2015
  8. ASA [Concomitant]
     Active Substance: ASPIRIN
     Route: 048
     Dates: start: 2004
  9. AMARYL FLEX [Concomitant]
     Indication: DIABETES MELLITUS
     Route: 048
     Dates: start: 2004
  10. GLIFAGE XR [Concomitant]
     Active Substance: METFORMIN HYDROCHLORIDE
     Indication: DIABETES MELLITUS
     Route: 048
     Dates: start: 2004
  11. CIPROFIBRATE [Concomitant]
     Active Substance: CIPROFIBRATE
     Dosage: DAILY
     Dates: start: 2010, end: 201105

REACTIONS (7)
  - Blood pressure inadequately controlled [Recovered/Resolved]
  - Arterial occlusive disease [Recovered/Resolved]
  - Hypercholesterolaemia [Recovered/Resolved]
  - Vulvovaginal pruritus [Recovering/Resolving]
  - Weight decreased [Not Recovered/Not Resolved]
  - Drug ineffective [Recovered/Resolved]
  - Inappropriate schedule of drug administration [Not Recovered/Not Resolved]

NARRATIVE: CASE EVENT DATE: 2010
